FAERS Safety Report 25947966 (Version 4)
Quarter: 2025Q4

REPORT INFORMATION
  Report Type: Report from Study
  Country: US (occurrence: US)
  Receive Date: 20251022
  Receipt Date: 20251125
  Transmission Date: 20260117
  Serious: Yes (Hospitalization)
  Sender: ABBVIE
  Company Number: US-ABBVIE-6511610

PATIENT
  Age: 72 Year
  Sex: Female
  Weight: 72.574 kg

DRUGS (8)
  1. VYALEV [Suspect]
     Active Substance: FOSCARBIDOPA\FOSLEVODOPA
     Indication: Parkinson^s disease
     Route: 058
     Dates: start: 20250814, end: 20251015
  2. VYALEV [Suspect]
     Active Substance: FOSCARBIDOPA\FOSLEVODOPA
     Route: 058
  3. CEPHALEXIN [Concomitant]
     Active Substance: CEPHALEXIN
     Indication: Cellulitis
     Dates: start: 20251015
  4. VENLAFAXINE HCL [Concomitant]
     Active Substance: VENLAFAXINE HYDROCHLORIDE
     Indication: Depression
  5. PROTONIX [Concomitant]
     Active Substance: PANTOPRAZOLE SODIUM
     Indication: Product used for unknown indication
  6. LINZESS [Concomitant]
     Active Substance: LINACLOTIDE
     Indication: Balance disorder
  7. ALPRAZOLAM ER [Concomitant]
     Active Substance: ALPRAZOLAM
     Indication: Product used for unknown indication
  8. PANTOPRAZOLE SODIUM [Concomitant]
     Active Substance: PANTOPRAZOLE SODIUM
     Indication: Product used for unknown indication

REACTIONS (8)
  - Infection [Recovering/Resolving]
  - Dysphonia [Recovered/Resolved]
  - Peripheral swelling [Recovering/Resolving]
  - Muscle twitching [Recovered/Resolved]
  - Catheter site cellulitis [Unknown]
  - Dysarthria [Recovered/Resolved]
  - Asthenia [Recovering/Resolving]
  - Dysphemia [Recovered/Resolved]

NARRATIVE: CASE EVENT DATE: 20250101
